FAERS Safety Report 21369651 (Version 1)
Quarter: 2022Q3

REPORT INFORMATION
  Report Type: Spontaneous
  Country: US (occurrence: None)
  Receive Date: 20220922
  Receipt Date: 20220922
  Transmission Date: 20221026
  Serious: Yes (Hospitalization)
  Sender: FDA-Public Use
  Company Number: None

PATIENT
  Age: 81 Year
  Sex: Female

DRUGS (1)
  1. KEVZARA [Suspect]
     Active Substance: SARILUMAB
     Indication: Rheumatoid arthritis
     Dosage: OTHER FREQUENCY : Q2W;?
     Route: 058
     Dates: start: 20190509

REACTIONS (3)
  - Cough [None]
  - Productive cough [None]
  - Viral infection [None]

NARRATIVE: CASE EVENT DATE: 20220920
